FAERS Safety Report 4842441-4 (Version None)
Quarter: 2005Q4

REPORT INFORMATION
  Report Type: 
  Country: None (occurrence: None)
  Receive Date: 20051201
  Receipt Date: 20051121
  Transmission Date: 20060501
  Serious: Yes (Hospitalization)
  Sender: FDA-Public Use
  Company Number: GB-BRISTOL-MYERS SQUIBB COMPANY-13192133

PATIENT
  Age: 67 Year
  Sex: Female
  Weight: 95 kg

DRUGS (5)
  1. KENALOG-40 [Suspect]
     Indication: BACK PAIN
     Route: 008
     Dates: start: 20051114
  2. LIDOCAINE [Concomitant]
  3. ANTIHYPERTENSIVE [Concomitant]
  4. GABAPENTIN [Concomitant]
     Indication: PAIN
     Route: 048
     Dates: start: 20020101
  5. THYROXINE [Concomitant]
     Indication: HYPOTHYROIDISM
     Route: 048
     Dates: start: 19900101

REACTIONS (2)
  - MONOPLEGIA [None]
  - SENSORIMOTOR DISORDER [None]
